FAERS Safety Report 13069159 (Version 2)
Quarter: 2017Q1

REPORT INFORMATION
  Report Type: Spontaneous
  Country: US (occurrence: US)
  Receive Date: 20161228
  Receipt Date: 20170127
  Transmission Date: 20170428
  Serious: No
  Sender: FDA-Public Use
  Company Number: US-PFIZER INC-2016584952

PATIENT
  Age: 60 Year
  Sex: Female

DRUGS (1)
  1. INDERAL [Suspect]
     Active Substance: PROPRANOLOL HYDROCHLORIDE
     Indication: MIGRAINE
     Dosage: 20 MG, 2X/DAY
     Route: 048
     Dates: start: 20160203, end: 20160307

REACTIONS (4)
  - Dizziness [Unknown]
  - Insomnia [Unknown]
  - Heart rate increased [Unknown]
  - Amnesia [Unknown]
